FAERS Safety Report 5939760-7 (Version None)
Quarter: 2008Q4

REPORT INFORMATION
  Report Type: 
  Country: None (occurrence: None)
  Receive Date: 20081030
  Receipt Date: 20081030
  Transmission Date: 20090506
  Serious: No
  Sender: FDA-Public Use
  Company Number: None

PATIENT
  Sex: Male
  Weight: 113.3993 kg

DRUGS (2)
  1. AVELOX [Suspect]
     Indication: INFECTION
     Dosage: 1 DAILY
     Dates: start: 20080301, end: 20080601
  2. LEVAQUIN [Suspect]
     Indication: INFECTION
     Dosage: 1 DAILY
     Dates: start: 20071001

REACTIONS (5)
  - BURNING SENSATION [None]
  - INSOMNIA [None]
  - PNEUMONIA [None]
  - TENDON DISORDER [None]
  - TENDON PAIN [None]
